FAERS Safety Report 15714596 (Version 1)
Quarter: 2018Q4

REPORT INFORMATION
  Report Type: Spontaneous
  Country: US (occurrence: US)
  Receive Date: 20181212
  Receipt Date: 20181212
  Transmission Date: 20190205
  Serious: No
  Sender: FDA-Public Use
  Company Number: US-SA-2018SA336098

PATIENT
  Sex: Female

DRUGS (2)
  1. DULCOLAX NOS [Suspect]
     Active Substance: BISACODYL OR DOCUSATE SODIUM
     Dosage: 5 MG, BID
  2. XENICAL [Concomitant]
     Active Substance: ORLISTAT
     Dosage: 120 MG
     Dates: start: 2008

REACTIONS (1)
  - Drug ineffective [Unknown]
